FAERS Safety Report 4523208-3 (Version None)
Quarter: 2004Q4

REPORT INFORMATION
  Report Type: 
  Country: None (occurrence: None)
  Receive Date: 20041208
  Receipt Date: 20041208
  Transmission Date: 20050328
  Serious: No
  Sender: FDA-Public Use
  Company Number: None

PATIENT
  Sex: Male
  Weight: 96.5 kg

DRUGS (4)
  1. PACLITAXEL [Suspect]
     Indication: LARGE CELL CARCINOMA OF THE RESPIRATORY TRACT STAGE UNSPECIFIED
     Dosage: 200 MG/M2 IV OVER 3 HR ON DAY 1, EVERY 21 DAYS
     Route: 042
     Dates: start: 20040922
  2. CARBOPLATIN [Suspect]
     Dosage: 6 AUC IV OVER 30 MIN ON DAY 1, EVERY 21 DAYS
     Route: 042
     Dates: start: 20040922
  3. ZD1839: 250 MG PO QD CYCLE = 21 DAYS [Suspect]
     Dosage: 250 MG PO QD CYCLE = 21 DAYS
     Route: 048
     Dates: start: 20040922
  4. RADIOTHERAPY CYCLES 3-9 [Suspect]
     Dosage: TOTAL DOSE 6600 CGY FRACTIONS QD ON DAYS 1-5 QW, FOR TOTAL OF 33 FRACTIONS
     Dates: start: 20040922

REACTIONS (13)
  - ACTIVITIES OF DAILY LIVING IMPAIRED [None]
  - ANAEMIA [None]
  - ASTHENIA [None]
  - CHILLS [None]
  - DYSGEUSIA [None]
  - DYSPNOEA [None]
  - HYPERHIDROSIS [None]
  - INSOMNIA [None]
  - MYALGIA [None]
  - PALLOR [None]
  - PRODUCTIVE COUGH [None]
  - PYREXIA [None]
  - WHITE BLOOD CELL COUNT INCREASED [None]
